FAERS Safety Report 20698301 (Version 5)
Quarter: 2022Q2

REPORT INFORMATION
  Report Type: Spontaneous
  Country: CN (occurrence: CN)
  Receive Date: 20220412
  Receipt Date: 20220622
  Transmission Date: 20220721
  Serious: Yes (Life-Threatening, Other)
  Sender: FDA-Public Use
  Company Number: CN-NOVOPROD-905854

PATIENT
  Age: 59 Year
  Sex: Male
  Weight: 69 kg

DRUGS (2)
  1. NOVOLIN R [Suspect]
     Active Substance: INSULIN HUMAN
     Dosage: 23 IU, QD (11 IU IN THE MORNING AND 12 IU IN THE EVENING)
     Route: 058
     Dates: start: 202203, end: 20220326
  2. NOVOLIN R [Suspect]
     Active Substance: INSULIN HUMAN
     Indication: Type 2 diabetes mellitus
     Dosage: UNK
     Route: 058
     Dates: start: 202203

REACTIONS (6)
  - Diabetic hyperglycaemic coma [Recovered/Resolved]
  - Drug ineffective [Unknown]
  - Suspected product quality issue [Recovering/Resolving]
  - Nausea [Recovered/Resolved]
  - Retching [Recovered/Resolved]
  - Vomiting [Unknown]

NARRATIVE: CASE EVENT DATE: 20220323
